FAERS Safety Report 12791411 (Version 3)
Quarter: 2019Q2

REPORT INFORMATION
  Report Type: Report from Study
  Country: CA (occurrence: CA)
  Receive Date: 20160929
  Receipt Date: 20190626
  Transmission Date: 20190711
  Serious: Yes (Hospitalization)
  Sender: FDA-Public Use
  Company Number: PHHY2014CA068702

PATIENT
  Sex: Male

DRUGS (2)
  1. TYLENOL [Concomitant]
     Active Substance: ACETAMINOPHEN
     Indication: PRODUCT USED FOR UNKNOWN INDICATION
     Route: 065
  2. TASIGNA [Suspect]
     Active Substance: NILOTINIB
     Indication: CHRONIC MYELOID LEUKAEMIA
     Dosage: 450 MG, QD
     Route: 048
     Dates: start: 20131212

REACTIONS (13)
  - Pneumonia [Unknown]
  - Pain [Unknown]
  - Acne [Unknown]
  - Visual impairment [Unknown]
  - Arthralgia [Unknown]
  - Nasopharyngitis [Unknown]
  - Alopecia [Unknown]
  - Pharyngeal paraesthesia [Unknown]
  - Migraine [Unknown]
  - Hair colour changes [Unknown]
  - Pruritus [Unknown]
  - Rash [Unknown]
  - Cough [Unknown]
